FAERS Safety Report 14457401 (Version 1)
Quarter: 2018Q1

REPORT INFORMATION
  Report Type: Spontaneous
  Country: US (occurrence: US)
  Receive Date: 20180130
  Receipt Date: 20180130
  Transmission Date: 20180509
  Serious: No
  Sender: FDA-Public Use
  Company Number: US-PFIZER INC-2018014648

PATIENT
  Age: 67 Year
  Sex: Male
  Weight: 75 kg

DRUGS (3)
  1. SUTENT [Suspect]
     Active Substance: SUNITINIB MALATE
     Indication: RENAL CELL CARCINOMA
  2. SUTENT [Suspect]
     Active Substance: SUNITINIB MALATE
     Indication: PROSTATE CANCER
     Dosage: 50 MG, CYCLIC (TAKES FOR 28 DAYS ON, 14 DAYS OFF)
     Route: 048
     Dates: start: 2017
  3. SUTENT [Suspect]
     Active Substance: SUNITINIB MALATE
     Indication: THROAT CANCER

REACTIONS (4)
  - Productive cough [Unknown]
  - Product use in unapproved indication [Unknown]
  - Cough [Unknown]
  - Oropharyngeal pain [Recovering/Resolving]

NARRATIVE: CASE EVENT DATE: 20180106
